FAERS Safety Report 16300398 (Version 2)
Quarter: 2019Q3

REPORT INFORMATION
  Report Type: Report from Study
  Country: US (occurrence: US)
  Receive Date: 20190510
  Receipt Date: 20190920
  Transmission Date: 20191004
  Serious: No
  Sender: FDA-Public Use
  Company Number: US-ALKERMES INC.-ALK-2019-000018

PATIENT
  Age: 34 Year
  Sex: Female

DRUGS (9)
  1. BLINDED BUPROPION [Suspect]
     Active Substance: BUPROPION
     Dosage: UNK UNK, QD
     Route: 048
     Dates: start: 20180913, end: 20181003
  2. MONTELUKAST [Concomitant]
     Active Substance: MONTELUKAST SODIUM
     Indication: HYPERSENSITIVITY
     Dosage: UNK
     Route: 065
     Dates: start: 20181231
  3. OTHER THERAPEUTIC PRODUCTS [Concomitant]
     Active Substance: UNSPECIFIED INGREDIENT
     Indication: CONTRACEPTION
     Dosage: UNK
     Dates: start: 20180927
  4. FOLIC ACID. [Concomitant]
     Active Substance: FOLIC ACID
     Indication: NUTRITIONAL SUPPLEMENTATION
     Dosage: UNK
     Route: 065
     Dates: start: 20191219
  5. VIVITROL [Suspect]
     Active Substance: NALTREXONE
     Dosage: UNK UNK, QD
     Route: 048
     Dates: start: 20180913, end: 20181003
  6. BLINDED BUPROPION [Suspect]
     Active Substance: BUPROPION
     Indication: DRUG USE DISORDER
     Dosage: 380 MG, QMO
     Route: 030
     Dates: start: 20180913, end: 20180913
  7. BLINDED PLACEBO [Suspect]
     Active Substance: INVESTIGATIONAL PRODUCT
     Indication: DRUG USE DISORDER
     Dosage: 380 MG, QMO
     Route: 030
     Dates: start: 20180913, end: 20180913
  8. VIVITROL [Suspect]
     Active Substance: NALTREXONE
     Indication: DRUG USE DISORDER
     Dosage: 380 MG, QMO
     Route: 030
     Dates: start: 20180913, end: 20180913
  9. BLINDED PLACEBO [Suspect]
     Active Substance: INVESTIGATIONAL PRODUCT
     Dosage: UNK UNK, QD
     Route: 048
     Dates: start: 20180913, end: 20181003

REACTIONS (1)
  - Pregnancy [Unknown]

NARRATIVE: CASE EVENT DATE: 2018
